FAERS Safety Report 8832516 (Version 3)
Quarter: 2012Q4

REPORT INFORMATION
  Report Type: 
  Country: AR (occurrence: AR)
  Receive Date: 20121010
  Receipt Date: 20121213
  Transmission Date: 20130627
  Serious: Yes (Other)
  Sender: FDA-Public Use
  Company Number: AR-AMGEN-ARGSP2012064346

PATIENT
  Age: 45 Year
  Sex: Female

DRUGS (7)
  1. ENBREL [Suspect]
     Indication: RHEUMATOID ARTHRITIS
     Dosage: 50 mg, weekly
     Route: 058
     Dates: start: 20070308
  2. ARTRAIT                            /00113801/ [Concomitant]
     Dosage: UNK
  3. PANTOPRAZOL [Concomitant]
     Dosage: UNK
  4. T4 [Concomitant]
     Dosage: UNK
  5. REDOXON                            /00008001/ [Concomitant]
     Dosage: UNK
  6. INDOMETACIN [Concomitant]
     Dosage: UNK
  7. HYDROXYCHLOROQUINE [Concomitant]
     Dosage: UNK

REACTIONS (5)
  - Musculoskeletal disorder [Unknown]
  - Localised infection [Recovered/Resolved]
  - Joint ankylosis [Not Recovered/Not Resolved]
  - Arthralgia [Not Recovered/Not Resolved]
  - Depressed mood [Unknown]
